FAERS Safety Report 23914238 (Version 1)
Quarter: 2024Q2

REPORT INFORMATION
  Report Type: Spontaneous
  Country: PL (occurrence: PL)
  Receive Date: 20240529
  Receipt Date: 20240529
  Transmission Date: 20240715
  Serious: Yes (Other)
  Sender: FDA-Public Use
  Company Number: PL-GILEAD-2024-0674224

PATIENT
  Age: 36 Year
  Sex: Female

DRUGS (5)
  1. BIKTARVY [Suspect]
     Active Substance: BICTEGRAVIR SODIUM\EMTRICITABINE\TENOFOVIR ALAFENAMIDE FUMARATE
     Indication: HIV infection
     Dosage: UNK
     Route: 065
  2. PENTAMIDINE [Concomitant]
     Active Substance: PENTAMIDINE
  3. FLUCONAZOLE [Concomitant]
     Active Substance: FLUCONAZOLE
  4. ACYCLOVIR [Concomitant]
     Active Substance: ACYCLOVIR
  5. VENLAFAXINE [Concomitant]
     Active Substance: VENLAFAXINE HYDROCHLORIDE

REACTIONS (5)
  - Cervical conisation [Unknown]
  - Depression [Unknown]
  - Anxiety [Unknown]
  - Adjustment disorder [Unknown]
  - Platelet count abnormal [Unknown]

NARRATIVE: CASE EVENT DATE: 20230628
